FAERS Safety Report 6139187-1 (Version None)
Quarter: 2009Q2

REPORT INFORMATION
  Report Type: 
  Country: None (occurrence: None)
  Receive Date: 20090401
  Receipt Date: 20090324
  Transmission Date: 20091009
  Serious: Yes (Hospitalization)
  Sender: FDA-Public Use
  Company Number: FR-PFIZER INC-2009188228

PATIENT

DRUGS (8)
  1. ATORVASTATIN CALCIUM [Suspect]
     Dosage: 20 MG, 1X/DAY
     Route: 048
     Dates: start: 20081106
  2. FLUINDIONE [Interacting]
     Route: 048
     Dates: start: 20081106, end: 20081110
  3. ENOXAPARIN SODIUM [Interacting]
     Dates: start: 20081106, end: 20081108
  4. CITALOPRAM [Interacting]
     Dosage: 1 DF, 1X/DAY
     Route: 048
  5. ALLOPURINOL [Interacting]
     Dosage: UNK
  6. NIFEDIPINE [Concomitant]
     Dosage: 30 MG, UNK
     Route: 048
  7. MACROGOL [Concomitant]
     Dosage: 4000 UNK, UNK
     Route: 048
  8. OXAZEPAM [Concomitant]
     Dosage: UNK

REACTIONS (2)
  - HAEMARTHROSIS [None]
  - HAEMORRHAGE [None]
